FAERS Safety Report 9443410 (Version 6)
Quarter: 2014Q4

REPORT INFORMATION
  Report Type: Spontaneous
  Country: FR (occurrence: FR)
  Receive Date: 20130806
  Receipt Date: 20141217
  Transmission Date: 20150529
  Serious: Yes (Hospitalization, Disabling, Other)
  Sender: FDA-Public Use
  Company Number: FR-GLAXOSMITHKLINE-B0912147A

PATIENT
  Age: 55 Year
  Sex: Female
  Weight: 58 kg

DRUGS (12)
  1. TEMESTA [Concomitant]
     Active Substance: LORAZEPAM
     Route: 065
     Dates: end: 20130627
  2. VALDOXAN [Concomitant]
     Active Substance: AGOMELATINE
     Route: 065
     Dates: start: 20130618, end: 20130627
  3. ATARAX [Concomitant]
     Active Substance: HYDROXYZINE\HYDROXYZINE HYDROCHLORIDE
     Route: 065
     Dates: start: 20130627
  4. XEROQUEL [Suspect]
     Active Substance: QUETIAPINE FUMARATE
     Indication: PRODUCT USED FOR UNKNOWN INDICATION
     Route: 065
     Dates: start: 20130611, end: 20130630
  5. URBANYL [Suspect]
     Active Substance: CLOBAZAM
     Indication: PRODUCT USED FOR UNKNOWN INDICATION
     Route: 065
     Dates: start: 20130628, end: 20130630
  6. XANAX [Concomitant]
     Active Substance: ALPRAZOLAM
     Route: 065
     Dates: end: 20130627
  7. LAMICTAL [Suspect]
     Active Substance: LAMOTRIGINE
     Indication: BIPOLAR DISORDER
     Dosage: 100 MG, BID
     Route: 048
     Dates: start: 20130618, end: 20130627
  8. LEVOTHYROX [Concomitant]
     Active Substance: LEVOTHYROXINE
     Route: 065
  9. NUROFEN [Concomitant]
     Active Substance: IBUPROFEN
     Indication: HEADACHE
     Route: 065
     Dates: start: 20130629
  10. CLAMOXYL [Suspect]
     Active Substance: AMOXICILLIN\CLAVULANIC ACID
     Indication: PRODUCT USED FOR UNKNOWN INDICATION
     Dosage: 1 G, TID
     Route: 065
     Dates: start: 20130629
  11. LEXOMIL [Concomitant]
     Active Substance: BROMAZEPAM
     Route: 065
     Dates: start: 20130611
  12. STILNOX [Concomitant]
     Active Substance: ZOLPIDEM TARTRATE
     Indication: INSOMNIA
     Route: 065
     Dates: end: 20130627

REACTIONS (44)
  - Malaise [Recovered/Resolved]
  - Blister [Recovered/Resolved]
  - Keratitis [Unknown]
  - Odynophagia [Unknown]
  - Ectropion [Not Recovered/Not Resolved]
  - Enamel anomaly [Not Recovered/Not Resolved]
  - Gingival disorder [Not Recovered/Not Resolved]
  - Aphthous stomatitis [Recovered/Resolved]
  - Growth of eyelashes [Not Recovered/Not Resolved]
  - Hyperthermia [Recovered/Resolved]
  - Toxic epidermal necrolysis [Recovered/Resolved with Sequelae]
  - Oropharyngeal pain [Recovered/Resolved]
  - Eyelid oedema [Recovered/Resolved]
  - Burning sensation [Not Recovered/Not Resolved]
  - Malnutrition [Unknown]
  - Vomiting [Unknown]
  - Seizure [Unknown]
  - Oral disorder [Unknown]
  - Rash erythematous [Recovered/Resolved with Sequelae]
  - Toxic skin eruption [Recovered/Resolved]
  - Incorrect dose administered [Unknown]
  - Headache [Unknown]
  - Macule [Recovered/Resolved with Sequelae]
  - Aptyalism [Recovered/Resolved]
  - Liver function test abnormal [Recovered/Resolved]
  - Alopecia [Recovered/Resolved]
  - Blindness [Recovered/Resolved]
  - Nail disorder [Unknown]
  - Conjunctivitis [Recovered/Resolved]
  - Normochromic normocytic anaemia [Unknown]
  - Eye burns [Unknown]
  - Asthenia [Not Recovered/Not Resolved]
  - Traumatic haematoma [Not Recovered/Not Resolved]
  - Vulvovaginal dryness [Not Recovered/Not Resolved]
  - Nail bed bleeding [Unknown]
  - Endodontic procedure [Unknown]
  - Mucous membrane disorder [Recovered/Resolved]
  - Onychomadesis [Recovering/Resolving]
  - Migraine [Unknown]
  - Hypersensitivity [Unknown]
  - Inflammation [Recovered/Resolved]
  - Pruritus [Recovered/Resolved]
  - Skin disorder [Recovered/Resolved]
  - Nail pterygium [Unknown]

NARRATIVE: CASE EVENT DATE: 2013
